FAERS Safety Report 4794627-5 (Version None)
Quarter: 2005Q4

REPORT INFORMATION
  Report Type: 
  Country: None (occurrence: None)
  Receive Date: 20051011
  Receipt Date: 20051006
  Transmission Date: 20060501
  Serious: Yes (Other)
  Sender: FDA-Public Use
  Company Number: ES-MERCK-0510ESP00006

PATIENT
  Age: 50 Year
  Sex: Female

DRUGS (4)
  1. ZETIA [Suspect]
     Indication: LOW DENSITY LIPOPROTEIN INCREASED
     Route: 048
     Dates: start: 20050101, end: 20050101
  2. ZETIA [Suspect]
     Route: 048
  3. ZETIA [Suspect]
     Indication: HYPERCHOLESTEROLAEMIA
     Route: 048
     Dates: start: 20050101, end: 20050101
  4. ZETIA [Suspect]
     Route: 048

REACTIONS (3)
  - DYSPHONIA [None]
  - FACE OEDEMA [None]
  - THROAT IRRITATION [None]
